FAERS Safety Report 10615403 (Version 1)
Quarter: 2014Q4

REPORT INFORMATION
  Report Type: Spontaneous
  Country: DE (occurrence: None)
  Receive Date: 20141125
  Receipt Date: 20141125
  Transmission Date: 20150529
  Serious: Yes (Other)
  Sender: FDA-Public Use
  Company Number: DE-20140179

PATIENT
  Age: 91 Year
  Sex: Female

DRUGS (2)
  1. ETHIBLOC (ZEIN , ALCOHOL, OLEM PAPAVERIS, PROPYLENE GLYCOL) [Concomitant]
  2. LIPIODOL [Suspect]
     Active Substance: ETHIODIZED OIL
     Indication: THERAPEUTIC EMBOLISATION
     Route: 014

REACTIONS (4)
  - Spinal cord infarction [None]
  - Paraplegia [None]
  - Off label use [None]
  - Ischaemia [None]
